FAERS Safety Report 22123871 (Version 2)
Quarter: 2023Q2

REPORT INFORMATION
  Report Type: Spontaneous
  Country: JP (occurrence: JP)
  Receive Date: 20230322
  Receipt Date: 20230407
  Transmission Date: 20230722
  Serious: Yes (Hospitalization, Other)
  Sender: FDA-Public Use
  Company Number: JP-MSD-M2023-10876

PATIENT
  Age: 54 Year
  Sex: Female

DRUGS (3)
  1. KEYTRUDA [Suspect]
     Active Substance: PEMBROLIZUMAB
     Indication: Triple negative breast cancer
     Dosage: 200 MILLIGRAM, Q3W
     Route: 041
     Dates: start: 20230214, end: 20230214
  2. GEMCITABINE HYDROCHLORIDE [Concomitant]
     Active Substance: GEMCITABINE HYDROCHLORIDE
     Dosage: UNK
     Route: 041
  3. CARBOPLATIN [Concomitant]
     Active Substance: CARBOPLATIN
     Dosage: UNK
     Route: 041

REACTIONS (10)
  - Hypoglycaemia [Unknown]
  - Malignant neoplasm progression [Unknown]
  - Blood creatine phosphokinase increased [Not Recovered/Not Resolved]
  - Thyroiditis [Not Recovered/Not Resolved]
  - Immune-mediated hepatic disorder [Not Recovered/Not Resolved]
  - Immune-mediated hepatitis [Unknown]
  - Hypothyroidism [Not Recovered/Not Resolved]
  - Drug ineffective [Not Recovered/Not Resolved]
  - KL-6 increased [Unknown]
  - Pyrexia [Recovered/Resolved]

NARRATIVE: CASE EVENT DATE: 20230101
